FAERS Safety Report 5370187-5 (Version None)
Quarter: 2007Q2

REPORT INFORMATION
  Report Type: 
  Country: None (occurrence: None)
  Receive Date: 20070614
  Receipt Date: 20070508
  Transmission Date: 20071010
  Serious: No
  Sender: FDA-Public Use
  Company Number: BDI-009521

PATIENT
  Age: 51 Year
  Sex: Male
  Weight: 225 kg

DRUGS (2)
  1. MULTIHANCE [Suspect]
     Indication: HODGKIN'S DISEASE
     Dosage: 20 ML ONCE IV
     Route: 042
     Dates: start: 20070504, end: 20070504
  2. MULTIHANCE [Suspect]
     Indication: NUCLEAR MAGNETIC RESONANCE IMAGING BRAIN
     Dosage: 20 ML ONCE IV
     Route: 042
     Dates: start: 20070504, end: 20070504

REACTIONS (1)
  - HYPERSENSITIVITY [None]
